FAERS Safety Report 8984406 (Version 1)
Quarter: 2012Q4

REPORT INFORMATION
  Report Type: 
  Country: US (occurrence: US)
  Receive Date: 20121226
  Receipt Date: 20121226
  Transmission Date: 20130627
  Serious: Yes (Other)
  Sender: FDA-Public Use
  Company Number: US-JNJFOC-20110611898

PATIENT
  Age: 83 None
  Sex: Female
  Weight: 57.15 kg

DRUGS (6)
  1. SIMPONI [Suspect]
     Indication: RHEUMATOID ARTHRITIS
     Route: 058
     Dates: start: 201006, end: 20121108
  2. METHOTREXATE [Suspect]
     Indication: RHEUMATOID ARTHRITIS
     Route: 065
     Dates: end: 201210
  3. METHYLPREDNISOLONE [Suspect]
     Indication: PRURITUS
     Route: 065
     Dates: start: 20121207
  4. METHOTREXATE [Concomitant]
     Route: 048
     Dates: start: 2010
  5. FOLATE [Concomitant]
  6. PREDNISONE [Concomitant]

REACTIONS (8)
  - Intraocular pressure increased [Recovered/Resolved]
  - Sinusitis [Unknown]
  - Rash pruritic [Recovering/Resolving]
  - Drug ineffective [Not Recovered/Not Resolved]
  - Skin discolouration [Not Recovered/Not Resolved]
  - Urinary tract infection [Unknown]
  - Abnormal loss of weight [Not Recovered/Not Resolved]
  - Visual acuity reduced [Not Recovered/Not Resolved]
